FAERS Safety Report 8055266-6 (Version None)
Quarter: 2012Q1

REPORT INFORMATION
  Report Type: 
  Country: None (occurrence: None)
  Receive Date: 20120119
  Receipt Date: 20120111
  Transmission Date: 20120608
  Serious: Yes (Other)
  Sender: FDA-Public Use
  Company Number: JP-ASTELLAS-2012JP000177

PATIENT
  Sex: Male

DRUGS (11)
  1. VESICARE [Suspect]
     Indication: HYPERTONIC BLADDER
     Dosage: 5 MG, UID/QD
     Route: 048
     Dates: start: 20110709, end: 20111028
  2. DILTIAZEM HCL [Concomitant]
     Indication: ANGINA PECTORIS
     Dosage: 100 MG, UID/QD
     Route: 048
     Dates: start: 20101025
  3. ISOSORBIDE MONONITRATE [Concomitant]
     Indication: ANGINA PECTORIS
     Dosage: 20 MG, BID
     Route: 048
     Dates: start: 20081117
  4. VESICARE [Suspect]
     Dosage: 5 MG, UID/QD
     Route: 048
     Dates: start: 20111112
  5. GASTROM [Concomitant]
     Indication: GASTRITIS
     Dosage: 1.5 G, BID
     Route: 048
     Dates: start: 20081117
  6. MIRABEGRON [Suspect]
     Indication: HYPERTONIC BLADDER
     Dosage: 50 MG, UID/QD
     Route: 048
     Dates: start: 20111029, end: 20111030
  7. RABEPRAZOLE SODIUM [Concomitant]
     Indication: GASTROOESOPHAGEAL REFLUX DISEASE
     Dosage: 10 MG, UID/QD
     Route: 048
     Dates: start: 20081117
  8. ASPIRIN [Concomitant]
     Indication: ANGINA PECTORIS
     Dosage: 100 MG, UID/QD
     Route: 048
     Dates: start: 20101025
  9. MICARDIS [Concomitant]
     Indication: HYPERTENSION
     Dosage: 40 MG, BID
     Route: 048
     Dates: start: 20081117
  10. FLIVAS [Concomitant]
     Indication: BENIGN PROSTATIC HYPERPLASIA
     Dosage: 25 MG, BID
     Route: 048
     Dates: start: 20081117
  11. LIPITOR [Concomitant]
     Indication: HYPERLIPIDAEMIA
     Dosage: 10 MG, UID/QD
     Route: 048
     Dates: start: 20101025

REACTIONS (3)
  - DRY MOUTH [None]
  - ARTERIOSPASM CORONARY [None]
  - CHEST PAIN [None]
